FAERS Safety Report 6437032-8 (Version None)
Quarter: 2009Q4

REPORT INFORMATION
  Report Type: 
  Country: None (occurrence: None)
  Receive Date: 20091112
  Receipt Date: 20091103
  Transmission Date: 20100525
  Serious: Yes (Hospitalization, Other)
  Sender: FDA-Public Use
  Company Number: US-JNJFOC-20091101508

PATIENT
  Age: 16 Year
  Sex: Female

DRUGS (1)
  1. HALOPERIDOL [Suspect]
     Indication: DRUG USE FOR UNKNOWN INDICATION
     Dosage: PATIENT HAD BEEN TAKING FOR 2 MONTHS
     Route: 065

REACTIONS (6)
  - AGITATION [None]
  - ANXIETY [None]
  - DISORIENTATION [None]
  - HAEMOGLOBINURIA [None]
  - HALLUCINATION [None]
  - NEUROLEPTIC MALIGNANT SYNDROME [None]
